FAERS Safety Report 9322640 (Version 2)
Quarter: 2013Q2

REPORT INFORMATION
  Report Type: Spontaneous
  Country: US (occurrence: US)
  Receive Date: 20130531
  Receipt Date: 20130614
  Transmission Date: 20140414
  Serious: No
  Sender: FDA-Public Use
  Company Number: US-TEVA-409016USA

PATIENT
  Age: 62 Year
  Sex: Female
  Weight: 64.47 kg

DRUGS (6)
  1. PROAIR HFA [Suspect]
     Dates: start: 20130426
  2. CHERATUSSIN [Concomitant]
     Indication: COUGH
     Dosage: 1 TSP TID
     Route: 048
     Dates: start: 20130525
  3. AVELOX [Concomitant]
     Indication: PNEUMONIA
     Dosage: 400 MILLIGRAM DAILY;
     Route: 048
     Dates: start: 20130426
  4. LEVOTHYROXINE [Concomitant]
     Indication: HYPOTHYROIDISM
     Dosage: 175 MICROGRAM DAILY;
     Route: 048
     Dates: start: 20040401
  5. ZYRTEC [Concomitant]
     Indication: HYPERSENSITIVITY
     Route: 048
  6. IBUPROFEN [Concomitant]
     Indication: HEADACHE
     Route: 048
     Dates: start: 20130426

REACTIONS (3)
  - Nausea [Recovered/Resolved]
  - Vomiting [Unknown]
  - Headache [Recovered/Resolved]
